FAERS Safety Report 12782241 (Version 1)
Quarter: 2016Q3

REPORT INFORMATION
  Report Type: Spontaneous
  Country: US (occurrence: US)
  Receive Date: 20160927
  Receipt Date: 20160927
  Transmission Date: 20161109
  Serious: Yes (Other)
  Sender: FDA-Public Use
  Company Number: US-BEH-200812944

PATIENT

DRUGS (2)
  1. ALBUMINAR-25 [Suspect]
     Active Substance: ALBUMIN HUMAN
     Dosage: DAILY DOSE QUANTITY: 50, DAILY DOSE UNIT: G
     Route: 042
     Dates: start: 20080205, end: 20080205
  2. PROTONIX [Suspect]
     Active Substance: PANTOPRAZOLE SODIUM

REACTIONS (1)
  - Thrombocytopenia [Unknown]
